FAERS Safety Report 8617789-8 (Version None)
Quarter: 2012Q3

REPORT INFORMATION
  Report Type: 
  Country: None (occurrence: None)
  Receive Date: 20120824
  Receipt Date: 20120302
  Transmission Date: 20120928
  Serious: No
  Sender: FDA-Public Use
  Company Number: US-ASTRAZENECA-2012SE14980

PATIENT
  Age: 80 Year
  Sex: Female

DRUGS (8)
  1. SYMBICORT [Suspect]
     Indication: CHRONIC OBSTRUCTIVE PULMONARY DISEASE
     Dosage: 640 MCG, 2 PUFFS BID
     Route: 055
  2. ATROVENT [Concomitant]
  3. NITROGLYCERIN [Concomitant]
  4. XOPONEX [Concomitant]
  5. LEVOXYL [Concomitant]
  6. VENTOLIN [Concomitant]
  7. DIOVAN [Concomitant]
  8. NEXIUM [Concomitant]
     Route: 048

REACTIONS (2)
  - CHRONIC OBSTRUCTIVE PULMONARY DISEASE [None]
  - CIRCUMSTANCE OR INFORMATION CAPABLE OF LEADING TO MEDICATION ERROR [None]
